FAERS Safety Report 5289280-0 (Version None)
Quarter: 2007Q2

REPORT INFORMATION
  Report Type: 
  Country: None (occurrence: None)
  Receive Date: 20070404
  Receipt Date: 20070404
  Transmission Date: 20071010
  Serious: No
  Sender: FDA-Public Use
  Company Number: None

PATIENT
  Sex: Male
  Weight: 62.5 kg

DRUGS (2)
  1. CISPLATIN [Suspect]
     Dosage: 140 MG
     Dates: end: 20061206
  2. ETOPOSIDE [Suspect]
     Dosage: 175 MG
     Dates: end: 20061208

REACTIONS (6)
  - LUNG CONSOLIDATION [None]
  - LUNG INFILTRATION [None]
  - METASTASES TO ABDOMINAL CAVITY [None]
  - METASTASES TO CENTRAL NERVOUS SYSTEM [None]
  - NEUTROPENIA [None]
  - PNEUMONIA [None]
